FAERS Safety Report 8257568-7 (Version None)
Quarter: 2012Q2

REPORT INFORMATION
  Report Type: 
  Country: None (occurrence: None)
  Receive Date: 20120403
  Receipt Date: 20120326
  Transmission Date: 20120825
  Serious: Yes (Other)
  Sender: FDA-Public Use
  Company Number: CN-ALLERGAN-1202688US

PATIENT
  Age: 42 Year
  Sex: Female
  Weight: 65 kg

DRUGS (3)
  1. BOTULINUM TOXIN TYPE A [Suspect]
     Indication: SKIN WRINKLING
     Dosage: 117 UNITS, SINGLE
     Route: 030
     Dates: start: 20120215, end: 20120215
  2. BOTULINUM TOXIN TYPE A [Suspect]
     Indication: MUSCLE HYPERTROPHY
  3. BOTULINUM TOXIN TYPE A [Suspect]

REACTIONS (6)
  - OROPHARYNGEAL PAIN [None]
  - WRONG TECHNIQUE IN DRUG USAGE PROCESS [None]
  - SWELLING FACE [None]
  - HEADACHE [None]
  - OEDEMA PERIPHERAL [None]
  - EYE SWELLING [None]
